FAERS Safety Report 10290727 (Version 1)
Quarter: 2014Q3

REPORT INFORMATION
  Report Type: Spontaneous
  Country: US (occurrence: None)
  Receive Date: 20140708
  Receipt Date: 20140708
  Transmission Date: 20150326
  Serious: Yes (Hospitalization, Disabling)
  Sender: FDA-Public Use
  Company Number: None

PATIENT
  Age: 58 Year
  Sex: Female
  Weight: 56.7 kg

DRUGS (1)
  1. ALENDRONATE [Suspect]
     Active Substance: ALENDRONATE SODIUM
     Indication: OSTEOPOROSIS
     Dosage: 1 PILL ONCE PER WEEK TAKEN BY MOUTH
     Route: 048
     Dates: start: 20140401, end: 20140626

REACTIONS (8)
  - Dyspnoea [None]
  - Fatigue [None]
  - Pruritus [None]
  - Pain in jaw [None]
  - Nausea [None]
  - Headache [None]
  - Muscular weakness [None]
  - Dizziness [None]

NARRATIVE: CASE EVENT DATE: 20140706
